FAERS Safety Report 25836573 (Version 1)
Quarter: 2025Q3

REPORT INFORMATION
  Report Type: Spontaneous
  Country: US (occurrence: None)
  Receive Date: 20250923
  Receipt Date: 20250923
  Transmission Date: 20251020
  Serious: Yes (Life-Threatening, Disabling, Other)
  Sender: FDA-CTU
  Company Number: None

PATIENT
  Sex: Male
  Weight: 72 kg

DRUGS (2)
  1. ABILIFY MAINTENA [Suspect]
     Active Substance: ARIPIPRAZOLE
     Indication: Inhalation therapy
     Route: 030
     Dates: start: 20230925, end: 20250510
  2. Proimmune [Concomitant]

REACTIONS (5)
  - Product advertising issue [None]
  - Neuropathy peripheral [None]
  - Victim of abuse [None]
  - Product use in unapproved indication [None]
  - Quality of life decreased [None]

NARRATIVE: CASE EVENT DATE: 20000422
